FAERS Safety Report 22530181 (Version 1)
Quarter: 2023Q2

REPORT INFORMATION
  Report Type: Spontaneous
  Country: US (occurrence: None)
  Receive Date: 20230606
  Receipt Date: 20230606
  Transmission Date: 20230721
  Serious: Yes (Death)
  Sender: FDA-Public Use
  Company Number: None

PATIENT
  Age: 60 Year
  Sex: Female
  Weight: 60.8 kg

DRUGS (1)
  1. PEMBROLIZUMAB [Suspect]
     Active Substance: PEMBROLIZUMAB
     Indication: Non-small cell lung cancer
     Dates: start: 20230105, end: 20230209

REACTIONS (5)
  - Myocarditis [None]
  - Atrioventricular block complete [None]
  - Colitis [None]
  - Ventricular tachycardia [None]
  - Hypotension [None]

NARRATIVE: CASE EVENT DATE: 20230225
